FAERS Safety Report 23004566 (Version 4)
Quarter: 2023Q4

REPORT INFORMATION
  Report Type: Spontaneous
  Country: JP (occurrence: JP)
  Receive Date: 20230928
  Receipt Date: 20231224
  Transmission Date: 20240109
  Serious: Yes (Hospitalization, Disabling, Other)
  Sender: FDA-Public Use
  Company Number: JP-SA-2023SA294121

PATIENT
  Age: 88 Year
  Sex: Female

DRUGS (6)
  1. DUPIXENT [Suspect]
     Active Substance: DUPILUMAB
     Indication: Neurodermatitis
     Dosage: 300 MG, QOW
     Route: 058
     Dates: start: 20230823, end: 20230906
  2. DUPIXENT [Suspect]
     Active Substance: DUPILUMAB
     Dosage: 300 MG, 1X
     Route: 058
     Dates: start: 20230919, end: 20230919
  3. DUPIXENT [Suspect]
     Active Substance: DUPILUMAB
     Dosage: UNK
     Route: 058
     Dates: start: 2023
  4. FEXOFENADINE HYDROCHLORIDE [Concomitant]
     Active Substance: FEXOFENADINE HYDROCHLORIDE
     Indication: Pruritus
     Dosage: 1 TO 2 TABLETS, BID
     Route: 048
     Dates: start: 20230315
  5. CYCLOSPORINE [Concomitant]
     Active Substance: CYCLOSPORINE
     Indication: Cutaneous symptom
     Dosage: 1 DF, BID
     Route: 048
     Dates: start: 20230405, end: 20230919
  6. CELESTAMINE [Concomitant]
     Active Substance: BETAMETHASONE\DEXCHLORPHENIRAMINE MALEATE
     Indication: Pruritus
     Dosage: 1 DF, BID
     Route: 048
     Dates: start: 20230419

REACTIONS (2)
  - Thrombotic cerebral infarction [Recovered/Resolved with Sequelae]
  - Hemiparesis [Unknown]

NARRATIVE: CASE EVENT DATE: 20230926
